FAERS Safety Report 4683401-6 (Version None)
Quarter: 2005Q2

REPORT INFORMATION
  Report Type: 
  Country: None (occurrence: None)
  Receive Date: 20050602
  Receipt Date: 20050405
  Transmission Date: 20051028
  Serious: No
  Sender: FDA-Public Use
  Company Number: 200510686BWH

PATIENT
  Age: 60 Year
  Sex: Male

DRUGS (8)
  1. LEVITRA [Suspect]
     Dosage: 10 MG, TOTAL DAILY, ORAL
     Route: 048
  2. LEVITRA [Suspect]
     Dosage: 20 MG, TOTAL DAILY, ORAL
     Route: 048
  3. LEVITRA [Suspect]
     Dosage: 20 MG, TOTAL DAILY, ORAL
     Route: 048
  4. LOTREL [Concomitant]
  5. CATAPRES [Concomitant]
  6. ACTOS [Concomitant]
  7. GLYNASE [Concomitant]
  8. TRICOR [Concomitant]

REACTIONS (1)
  - DRUG EFFECT DECREASED [None]
